FAERS Safety Report 4679967-2 (Version None)
Quarter: 2005Q2

REPORT INFORMATION
  Report Type: 
  Country: None (occurrence: None)
  Receive Date: 20050602
  Receipt Date: 20050513
  Transmission Date: 20051028
  Serious: Yes (Other)
  Sender: FDA-Public Use
  Company Number: PHNU2005DE01956

PATIENT
  Age: 45 Year
  Sex: Female
  Weight: 80 kg

DRUGS (6)
  1. LIORESAL [Suspect]
     Indication: MUSCLE SPASTICITY
     Dosage: 5 MG, TID
     Route: 048
     Dates: start: 20040101, end: 20050511
  2. ZOLOFT [Suspect]
     Indication: DEPRESSION
     Dosage: 50 MG/DAY
     Route: 048
     Dates: start: 20050201, end: 20050511
  3. ACIMETHIN [Concomitant]
     Indication: URINARY TRACT INFECTION
     Dosage: 1500 MG/DAY
     Route: 048
     Dates: end: 20050511
  4. PANTOPRAZOLE SODIUM [Concomitant]
     Indication: PROPHYLAXIS OF NAUSEA AND VOMITING
     Dosage: 40 MG/DAY
     Route: 048
     Dates: start: 20050201, end: 20050511
  5. TORSEMIDE [Concomitant]
     Indication: HYPERTENSION
     Dosage: 5 MG, QD
     Route: 048
     Dates: start: 20050201, end: 20050511
  6. ACETYLSALICYLIC ACID [Concomitant]
     Indication: THROMBOCYTHAEMIA
     Dosage: 100 MG, QD
     Route: 048
     Dates: start: 20050201, end: 20050511

REACTIONS (4)
  - DRUG TOXICITY [None]
  - HYPOTHERMIA [None]
  - LEUKOPENIA [None]
  - THROMBOCYTOPENIA [None]
